FAERS Safety Report 19476685 (Version 1)
Quarter: 2021Q2

REPORT INFORMATION
  Report Type: Report from Study
  Country: US (occurrence: US)
  Receive Date: 20210630
  Receipt Date: 20210630
  Transmission Date: 20210717
  Serious: Yes (Hospitalization)
  Sender: FDA-Public Use
  Company Number: US-GILEAD-2021-0538308

PATIENT
  Sex: Female

DRUGS (5)
  1. NASAL DECONGESTANT [PSEUDOEPHEDRINE HYDROCHLORIDE] [Concomitant]
  2. NEBULIZER [Concomitant]
     Active Substance: DEVICE
  3. TOBI [Concomitant]
     Active Substance: TOBRAMYCIN
  4. VITAMIN D [VITAMIN D NOS] [Concomitant]
     Active Substance: VITAMIN D NOS
  5. AZTREONAM LYSINE [Suspect]
     Active Substance: AZTREONAM LYSINE
     Indication: HETEROTAXIA
     Dosage: RECONSTITUTE WITH 1ML SUPPLIED DILUENT + NEBULIZE 3 TIMES DAILY FOR 28 DAYS ON, 28 DAYS OFF.
     Route: 055
     Dates: start: 202010

REACTIONS (3)
  - Cough [Unknown]
  - Lung disorder [Unknown]
  - Off label use [Unknown]
